FAERS Safety Report 15866078 (Version 2)
Quarter: 2019Q1

REPORT INFORMATION
  Report Type: Spontaneous
  Country: US (occurrence: US)
  Receive Date: 20190125
  Receipt Date: 20190212
  Transmission Date: 20190417
  Serious: No
  Sender: FDA-Public Use
  Company Number: US-AMGEN-USASP2019011189

PATIENT
  Age: 52 Year
  Sex: Female

DRUGS (3)
  1. AIMOVIG [Suspect]
     Active Substance: ERENUMAB-AOOE
     Indication: MIGRAINE PROPHYLAXIS
     Dosage: 70 MG, QMO
     Route: 065
     Dates: start: 20180921, end: 2018
  2. AIMOVIG [Suspect]
     Active Substance: ERENUMAB-AOOE
     Dosage: 140 MG, QMO
     Route: 065
     Dates: start: 20190121
  3. IMITREX [Concomitant]
     Active Substance: SUMATRIPTAN SUCCINATE
     Dosage: UNK

REACTIONS (4)
  - Underdose [Unknown]
  - Accidental exposure to product [Unknown]
  - Wrong technique in product usage process [Unknown]
  - Injection site pain [Unknown]

NARRATIVE: CASE EVENT DATE: 20190121
